FAERS Safety Report 4840225-4 (Version None)
Quarter: 2005Q4

REPORT INFORMATION
  Report Type: 
  Country: None (occurrence: None)
  Receive Date: 20051125
  Receipt Date: 20051118
  Transmission Date: 20060501
  Serious: Yes (Hospitalization)
  Sender: FDA-Public Use
  Company Number: 2005-11-1212

PATIENT

DRUGS (1)
  1. PEG-INTRON [Suspect]

REACTIONS (1)
  - RECTAL HAEMORRHAGE [None]
